FAERS Safety Report 7678874-0 (Version None)
Quarter: 2011Q3

REPORT INFORMATION
  Report Type: 
  Country: None (occurrence: None)
  Receive Date: 20110812
  Receipt Date: 20110803
  Transmission Date: 20111222
  Serious: Yes (Death, Hospitalization)
  Sender: FDA-Public Use
  Company Number: US-BIOGENIDEC-2011BI024821

PATIENT
  Age: 64 Year
  Sex: Female

DRUGS (21)
  1. TYSABRI [Suspect]
     Indication: MULTIPLE SCLEROSIS
     Route: 042
     Dates: start: 20100823, end: 20110614
  2. CLONIDINE [Concomitant]
  3. ALLOPURINOL [Concomitant]
  4. XANAX [Concomitant]
  5. ASPIRIN [Concomitant]
  6. ACETAMINOPHEN [Concomitant]
  7. LASIX [Concomitant]
  8. NORVASC [Concomitant]
  9. SYNTHROID [Concomitant]
  10. CRESTOR [Concomitant]
  11. GLIPIZIDE [Concomitant]
  12. CELEXA [Concomitant]
  13. DICLOFENAC SODIUM [Concomitant]
  14. LORTAB [Concomitant]
  15. PLAVIX [Concomitant]
  16. MELOXICAM [Concomitant]
  17. PATANOL [Concomitant]
     Route: 047
  18. GABAPENTIN [Concomitant]
  19. ELAVIL [Concomitant]
  20. LANTUS [Concomitant]
  21. NOVOLOG [Concomitant]

REACTIONS (6)
  - DEPRESSION [None]
  - HYPOKALAEMIA [None]
  - DIZZINESS [None]
  - MULTIPLE DRUG OVERDOSE [None]
  - HYPOGLYCAEMIA [None]
  - LACERATION [None]
